FAERS Safety Report 5676970-0 (Version None)
Quarter: 2008Q1

REPORT INFORMATION
  Report Type: 
  Country: None (occurrence: None)
  Receive Date: 20080324
  Receipt Date: 20080313
  Transmission Date: 20080703
  Serious: Yes (Death)
  Sender: FDA-Public Use
  Company Number: US-ROCHE-550957

PATIENT
  Age: 65 Year
  Sex: Female
  Weight: 64.9 kg

DRUGS (1)
  1. CAPECITABINE [Suspect]
     Indication: HEPATIC NEOPLASM MALIGNANT
     Dosage: THE PATIENT WAS TAKING XELODA 500 MG TABLETS, 3 TABLETS DAILY.
     Route: 065
     Dates: start: 20071116, end: 20080101

REACTIONS (2)
  - HEPATIC FAILURE [None]
  - HEPATIC NEOPLASM MALIGNANT [None]
